FAERS Safety Report 9538488 (Version 4)
Quarter: 2013Q4

REPORT INFORMATION
  Report Type: Spontaneous
  Country: JP (occurrence: JP)
  Receive Date: 20130920
  Receipt Date: 20131121
  Transmission Date: 20140711
  Serious: Yes (Hospitalization)
  Sender: FDA-Public Use
  Company Number: JP-JNJFOC-20130910167

PATIENT
  Age: 69 Year
  Sex: Female
  Weight: 57 kg

DRUGS (8)
  1. REMICADE [Suspect]
     Indication: CROHN^S DISEASE
     Dosage: 10TH INFUSION
     Route: 042
     Dates: start: 20130816
  2. REMICADE [Suspect]
     Indication: CROHN^S DISEASE
     Route: 042
     Dates: start: 20120521
  3. SALAZOPYRIN [Concomitant]
     Indication: CROHN^S DISEASE
     Route: 048
     Dates: start: 20120511
  4. FAMOTIDINE [Concomitant]
     Indication: GASTRITIS
     Route: 048
     Dates: start: 20120720
  5. MAGMITT [Concomitant]
     Indication: CONSTIPATION
     Route: 048
     Dates: start: 20120914
  6. ALLEGRA [Concomitant]
     Indication: PROPHYLAXIS
     Route: 048
     Dates: start: 20130301
  7. MYSLEE [Concomitant]
     Indication: INSOMNIA
     Route: 048
  8. CALONAL [Concomitant]
     Indication: PROPHYLAXIS
     Route: 048

REACTIONS (2)
  - Tuberculosis [Recovering/Resolving]
  - Arthralgia [Unknown]
